FAERS Safety Report 7465781-1 (Version None)
Quarter: 2011Q2

REPORT INFORMATION
  Report Type: 
  Country: None (occurrence: None)
  Receive Date: 20110509
  Receipt Date: 20110504
  Transmission Date: 20111010
  Serious: Yes (Life-Threatening)
  Sender: FDA-Public Use
  Company Number: NZ-ASTRAZENECA-2011SE25807

PATIENT
  Age: 69 Year
  Sex: Female
  Weight: 80 kg

DRUGS (6)
  1. ATORVASTATIN [Concomitant]
  2. LIGNOCAINE WITH ADRENALIN [Concomitant]
     Dosage: 5 ML LIGNOCAINE WITH ADRENALIN 1:1000,000 ( TOTAL 50 MG LIGNOCAINE (0.6 MG/KG)
     Route: 053
  3. ASPIRIN [Concomitant]
  4. BUPIVACAINE HYDROCHLORIDE AND EPINEPHRINE [Suspect]
     Dosage: 30 ML WITH ADRENALIN 1:200,000 TOTAL 150 MG BUPIVACAINE (1.9 MG/KG)
     Route: 053
  5. FLUOXETINE [Concomitant]
  6. INSULIN [Concomitant]

REACTIONS (2)
  - CIRCULATORY COLLAPSE [None]
  - GRAND MAL CONVULSION [None]
